FAERS Safety Report 16701662 (Version 3)
Quarter: 2019Q3

REPORT INFORMATION
  Report Type: Spontaneous
  Country: JP (occurrence: JP)
  Receive Date: 20190814
  Receipt Date: 20190927
  Transmission Date: 20191004
  Serious: Yes (Hospitalization, Other)
  Sender: FDA-Public Use
  Company Number: JP-ASTRAZENECA-2019SF14446

PATIENT
  Age: 45 Year
  Sex: Female
  Weight: 46 kg

DRUGS (17)
  1. PINELLIA TUBER [Suspect]
     Active Substance: HERBALS
     Indication: MENORRHAGIA
     Dosage: 4.0G UNKNOWN
     Route: 065
  2. CINNAMON BARK OIL. [Suspect]
     Active Substance: CINNAMON BARK OIL
     Indication: MENORRHAGIA
     Dosage: 5.0G UNKNOWN
     Route: 065
  3. TAGRISSO [Suspect]
     Active Substance: OSIMERTINIB
     Indication: NON-SMALL CELL LUNG CANCER
     Route: 048
     Dates: start: 20190806
  4. CITRUS UNSHIU PEEL [Suspect]
     Active Substance: HERBALS
     Indication: MENORRHAGIA
     Dosage: 4.0G UNKNOWN
     Route: 065
  5. PORIA SCLEROTIUM [Suspect]
     Active Substance: HERBALS
     Indication: MENORRHAGIA
     Dosage: 6.0G UNKNOWN
     Route: 065
  6. ATRACTYLODES RHIZOME [Suspect]
     Active Substance: ATRACTYLODES LANCEA ROOT
     Indication: MENORRHAGIA
     Dosage: 5.0G UNKNOWN
     Route: 065
  7. GINGER. [Suspect]
     Active Substance: GINGER
     Indication: MENORRHAGIA
     Dosage: PROCESSED GINGER5.0G UNKNOWN
     Route: 065
  8. MIYA-BM [Concomitant]
     Active Substance: CLOSTRIDIUM BUTYRICUM SPORES STRAIN M-55
     Indication: DIARRHOEA
     Dosage: THREE TIMES A DAY
     Route: 048
     Dates: start: 20190319, end: 20190520
  9. TAGRISSO [Suspect]
     Active Substance: OSIMERTINIB
     Indication: NON-SMALL CELL LUNG CANCER
     Route: 048
     Dates: start: 20190820
  10. POLYPORUS SCLEROTIUM [Suspect]
     Active Substance: HERBALS
     Indication: MENORRHAGIA
     Dosage: 5.0G UNKNOWN
     Route: 065
  11. MAGNESIUM OXIDE. [Concomitant]
     Active Substance: MAGNESIUM OXIDE
     Indication: CONSTIPATION
     Route: 048
     Dates: start: 20190709, end: 20190722
  12. TAGRISSO [Suspect]
     Active Substance: OSIMERTINIB
     Indication: NON-SMALL CELL LUNG CANCER
     Route: 048
     Dates: start: 20190312
  13. ASTRAGALUS ROOT [Suspect]
     Active Substance: HERBALS
     Indication: MENORRHAGIA
     Dosage: 6.0G UNKNOWN
     Route: 065
  14. ASPARAGUS TUBER [Suspect]
     Active Substance: HERBALS
     Indication: MENORRHAGIA
     Dosage: 5.0G UNKNOWN
     Route: 065
  15. GINGER. [Suspect]
     Active Substance: GINGER
     Indication: MENORRHAGIA
     Dosage: 4.0G UNKNOWN
     Route: 065
  16. GINSENG [Suspect]
     Active Substance: ASIAN GINSENG
     Indication: MENORRHAGIA
     Dosage: 10.0G UNKNOWN
     Route: 065
  17. LOPERAMIDE HYDROCHLORIDE. [Concomitant]
     Active Substance: LOPERAMIDE HYDROCHLORIDE
     Indication: DIARRHOEA
     Route: 048
     Dates: start: 20190319, end: 20190422

REACTIONS (5)
  - Orthostatic hypotension [Unknown]
  - Off label use [Unknown]
  - Anaemia [Recovered/Resolved]
  - Malaise [Unknown]
  - Menorrhagia [Unknown]

NARRATIVE: CASE EVENT DATE: 201904
